FAERS Safety Report 19662777 (Version 2)
Quarter: 2022Q1

REPORT INFORMATION
  Report Type: Spontaneous
  Country: US (occurrence: US)
  Receive Date: 20210805
  Receipt Date: 20220321
  Transmission Date: 20220423
  Serious: No
  Sender: FDA-Public Use
  Company Number: US-MYLANLABS-2021M1045832

PATIENT
  Age: 47 Year
  Sex: Male
  Weight: 95.25 kg

DRUGS (5)
  1. SEMGLEE (INSULIN GLARGINE) [Suspect]
     Active Substance: INSULIN GLARGINE
     Indication: Type 2 diabetes mellitus
     Dosage: 65 IU BID, 100 IU IN 1 ML, 3 ML IN ONE SYRINGE
     Route: 058
  2. SEMGLEE (INSULIN GLARGINE) [Suspect]
     Active Substance: INSULIN GLARGINE
     Dosage: 100 UNITS/ML, 3 ML PREFILLED PEN
     Route: 058
     Dates: start: 20220105
  3. SEMGLEE (INSULIN GLARGINE) [Suspect]
     Active Substance: INSULIN GLARGINE
     Dosage: UNK, 100 UNITS/ML, 3 ML PREFILLED PEN
     Route: 058
     Dates: start: 20220110
  4. METFORMIN [Concomitant]
     Active Substance: METFORMIN HYDROCHLORIDE
     Dosage: UNK
  5. SEGLUROMET [Concomitant]
     Active Substance: ERTUGLIFLOZIN PIDOLATE\METFORMIN HYDROCHLORIDE
     Dosage: UNK

REACTIONS (2)
  - Device mechanical issue [None]
  - Product quality issue [None]

NARRATIVE: CASE EVENT DATE: 20220105
